FAERS Safety Report 4408603-5 (Version None)
Quarter: 2004Q3

REPORT INFORMATION
  Report Type: 
  Country: None (occurrence: None)
  Receive Date: 20040723
  Receipt Date: 20040707
  Transmission Date: 20050211
  Serious: Yes (Other)
  Sender: FDA-Public Use
  Company Number: CA-2004-028532

PATIENT
  Age: 53 Year
  Sex: Female

DRUGS (3)
  1. BETASERON [Suspect]
     Indication: MULTIPLE SCLEROSIS
     Dosage: 9.6 MIU, 3X/WEEK NEW AUTOINJECTO; SUBCUTANEOUS
     Route: 058
     Dates: start: 20040621, end: 20040703
  2. LITHIUM [Concomitant]
  3. AMITRIPTYLINE HCL [Concomitant]

REACTIONS (4)
  - ANXIETY [None]
  - MANIA [None]
  - PARANOIA [None]
  - STRESS SYMPTOMS [None]
